FAERS Safety Report 24549441 (Version 1)
Quarter: 2024Q4

REPORT INFORMATION
  Report Type: Spontaneous
  Country: DE (occurrence: DE)
  Receive Date: 20241025
  Receipt Date: 20241025
  Transmission Date: 20250115
  Serious: Yes (Death, Other)
  Sender: ALEXION PHARMACEUTICALS
  Company Number: DE-AstraZeneca-CH-00726985A

PATIENT

DRUGS (4)
  1. ONDEXXYA [Suspect]
     Active Substance: ANDEXANET ALFA
  2. ONDEXXYA [Suspect]
     Active Substance: ANDEXANET ALFA
  3. ONDEXXYA [Suspect]
     Active Substance: ANDEXANET ALFA
  4. ONDEXXYA [Suspect]
     Active Substance: ANDEXANET ALFA

REACTIONS (1)
  - Death [Fatal]
